FAERS Safety Report 5665499-1 (Version None)
Quarter: 2008Q1

REPORT INFORMATION
  Report Type: 
  Country: None (occurrence: None)
  Receive Date: 20080314
  Receipt Date: 20071206
  Transmission Date: 20080703
  Serious: No
  Sender: FDA-Public Use
  Company Number: US-ABBOTT-07P-163-0427836-00

PATIENT
  Sex: Female
  Weight: 59.02 kg

DRUGS (8)
  1. HUMIRA [Suspect]
     Indication: CROHN'S DISEASE
     Route: 058
     Dates: start: 20071121, end: 20071121
  2. HUMIRA [Suspect]
     Route: 058
     Dates: start: 20071205, end: 20071205
  3. HUMIRA [Suspect]
     Route: 058
  4. OMEPRAZOLE [Concomitant]
     Indication: GASTROOESOPHAGEAL REFLUX DISEASE
     Route: 048
  5. TIMOLOL MALEATE [Concomitant]
     Indication: GLAUCOMA
  6. TRAVOPROST [Concomitant]
     Indication: GLAUCOMA
  7. METRONIDAZOLE HCL [Concomitant]
     Indication: RECTAL ABSCESS
     Route: 048
  8. MESALAMINE [Concomitant]
     Indication: CROHN'S DISEASE
     Route: 048

REACTIONS (1)
  - ACCIDENTAL EXPOSURE [None]
